FAERS Safety Report 10081771 (Version 1)
Quarter: 2014Q2

REPORT INFORMATION
  Report Type: Report from Study
  Country: US (occurrence: US)
  Receive Date: 20140416
  Receipt Date: 20140416
  Transmission Date: 20141212
  Serious: Yes (Other)
  Sender: FDA-Public Use
  Company Number: US-PURDUE-USA-2014-0112911

PATIENT
  Sex: Male

DRUGS (2)
  1. OXY CR TAB [Suspect]
     Indication: PRODUCT USED FOR UNKNOWN INDICATION
     Dosage: 160 MG, Q12H
     Route: 048
     Dates: start: 20140319
  2. OXY CR TAB [Suspect]
     Dosage: 10 MG, Q12H
     Route: 048
     Dates: start: 20140319

REACTIONS (1)
  - Tooth abscess [Not Recovered/Not Resolved]
